FAERS Safety Report 20124586 (Version 1)
Quarter: 2021Q4

REPORT INFORMATION
  Report Type: Spontaneous
  Country: FR (occurrence: FR)
  Receive Date: 20211129
  Receipt Date: 20211129
  Transmission Date: 20220303
  Serious: Yes (Other)
  Sender: FDA-Public Use
  Company Number: None

PATIENT
  Age: 17 Year
  Sex: Male

DRUGS (2)
  1. ERLOTINIB [Suspect]
     Active Substance: ERLOTINIB
     Indication: Palmoplantar keratoderma
     Dosage: 100 MILLIGRAM, QD
     Route: 065
  2. PREDNISONE [Concomitant]
     Active Substance: PREDNISONE
     Indication: Pain
     Dosage: 2 MILLIGRAM/KILOGRAM, QD
     Route: 065

REACTIONS (2)
  - Alopecia [Unknown]
  - Dermatitis acneiform [Unknown]
